FAERS Safety Report 4397615-6 (Version None)
Quarter: 2004Q3

REPORT INFORMATION
  Report Type: 
  Country: None (occurrence: None)
  Receive Date: 20040714
  Receipt Date: 20040628
  Transmission Date: 20050211
  Serious: Yes (Death, Other)
  Sender: FDA-Public Use
  Company Number: A-US2004-05314

PATIENT
  Age: 74 Year
  Sex: Male

DRUGS (12)
  1. TRACLEER [Suspect]
     Indication: PULMONARY HYPERTENSION
     Dosage: SEE IMAGE
     Route: 048
     Dates: start: 20031212, end: 20040113
  2. TRACLEER [Suspect]
     Indication: PULMONARY HYPERTENSION
     Dosage: SEE IMAGE
     Route: 048
     Dates: start: 20040114, end: 20040130
  3. . [Concomitant]
  4. HUMIBID (GUAIFENESIN) [Concomitant]
  5. DUONEB [Concomitant]
  6. BACTRIM [Concomitant]
  7. PREDNISONE TAB [Concomitant]
  8. FUROSEMIDE [Concomitant]
  9. MIACALCIN [Concomitant]
  10. CALCIUM (CALCIUM) [Concomitant]
  11. ZANTAC [Concomitant]
  12. LORAZEPAM [Concomitant]

REACTIONS (8)
  - ALANINE AMINOTRANSFERASE INCREASED [None]
  - ASPARTATE AMINOTRANSFERASE INCREASED [None]
  - BLOOD ALKALINE PHOSPHATASE INCREASED [None]
  - BLOOD BILIRUBIN INCREASED [None]
  - CARDIAC FAILURE [None]
  - LIVER FUNCTION TEST ABNORMAL [None]
  - PULMONARY FIBROSIS [None]
  - RIGHT VENTRICULAR FAILURE [None]
